FAERS Safety Report 14872939 (Version 2)
Quarter: 2020Q1

REPORT INFORMATION
  Report Type: Spontaneous
  Country: GB (occurrence: GB)
  Receive Date: 20180510
  Receipt Date: 20200225
  Transmission Date: 20200409
  Serious: Yes (Life-Threatening, Hospitalization, Other)
  Sender: FDA-Public Use
  Company Number: GB-BRISTOL-MYERS SQUIBB COMPANY-BMS-2018-041713

PATIENT
  Age: 13 Year
  Sex: Female

DRUGS (1)
  1. APIXABAN [Suspect]
     Active Substance: APIXABAN
     Indication: PRODUCT USED FOR UNKNOWN INDICATION
     Dosage: UNK
     Route: 065

REACTIONS (5)
  - Skin laceration [Unknown]
  - Intentional self-injury [Unknown]
  - Haemorrhage [Unknown]
  - Intentional overdose [Unknown]
  - Malaise [Unknown]

NARRATIVE: CASE EVENT DATE: 201805
